FAERS Safety Report 9787113 (Version 2)
Quarter: 2013Q4

REPORT INFORMATION
  Report Type: Report from Study
  Country: US (occurrence: US)
  Receive Date: 20131228
  Receipt Date: 20131228
  Transmission Date: 20140711
  Serious: Yes (Hospitalization)
  Sender: FDA-Public Use
  Company Number: US-ROCHE-1263710

PATIENT
  Age: 53 Year
  Sex: Female

DRUGS (6)
  1. BEVACIZUMAB [Suspect]
     Indication: RENAL CELL CARCINOMA
     Dosage: CYCLE 1, OVER 30-90 MINUTES.
     Route: 042
     Dates: start: 20130627
  2. BEVACIZUMAB [Suspect]
     Dosage: CYCLE 2, OVER 30-90 MINUTES.
     Route: 042
  3. TRC105 [Suspect]
     Indication: RENAL CELL CARCINOMA
     Dosage: CYCLE 1, OVER 4 HOURS, RECIEVED LAST DOSE ON 14/AUG/2013.
     Route: 042
  4. TRC105 [Suspect]
     Dosage: CYCLE 1, OVER 4 HOURS
     Route: 042
  5. TRC105 [Suspect]
     Dosage: CYCLE 1, OVER 4 HOURS.
     Route: 042
  6. TRC105 [Suspect]
     Dosage: CYCLE 2, OVER 1-4 HOURS
     Route: 042

REACTIONS (2)
  - Vomiting [Unknown]
  - Pleural effusion [Recovered/Resolved]
